FAERS Safety Report 14930379 (Version 1)
Quarter: 2018Q2

REPORT INFORMATION
  Report Type: Spontaneous
  Country: ZA (occurrence: ZA)
  Receive Date: 20180523
  Receipt Date: 20180523
  Transmission Date: 20180711
  Serious: Yes (Hospitalization)
  Sender: FDA-Public Use
  Company Number: ZA-PFIZER INC-2018208465

PATIENT
  Age: 77 Year
  Sex: Male

DRUGS (7)
  1. BIO NIFEDIPINE XL [Suspect]
     Active Substance: NIFEDIPINE
     Dosage: 30 MG, UNK
  2. ALLOPURINOL SANDOZ [Suspect]
     Active Substance: ALLOPURINOL
     Dosage: 300 MG, UNK
  3. LYRICA [Suspect]
     Active Substance: PREGABALIN
     Dosage: 75 MG, UNK
  4. LASIX [Suspect]
     Active Substance: FUROSEMIDE
     Dosage: 40 MG, UNK
  5. VESICARE [Suspect]
     Active Substance: SOLIFENACIN SUCCINATE
     Dosage: 5 MG, UNK
  6. FEDALOC [Suspect]
     Active Substance: NIFEDIPINE
     Dosage: 30 MG, UNK
  7. BIO ATENOLOL [Suspect]
     Active Substance: ATENOLOL
     Dosage: 50 MG, UNK

REACTIONS (2)
  - Pleural effusion [Unknown]
  - Cardiomegaly [Unknown]
